FAERS Safety Report 18840681 (Version 1)
Quarter: 2021Q1

REPORT INFORMATION
  Report Type: Spontaneous
  Country: US (occurrence: US)
  Receive Date: 20210204
  Receipt Date: 20210204
  Transmission Date: 20210419
  Serious: Yes (Other)
  Sender: FDA-Public Use
  Company Number: US-EMD SERONO-7044648

PATIENT
  Age: 41 Year
  Sex: Female

DRUGS (3)
  1. REBIF [Suspect]
     Active Substance: INTERFERON BETA-1A
     Indication: MULTIPLE SCLEROSIS
     Route: 058
     Dates: start: 20101130
  2. REBIF [Suspect]
     Active Substance: INTERFERON BETA-1A
     Route: 058
     Dates: start: 20200513
  3. IMPLANON [Concomitant]
     Active Substance: ETONOGESTREL
     Indication: CONTRACEPTION

REACTIONS (4)
  - Hypertension [Not Recovered/Not Resolved]
  - Fatigue [Unknown]
  - Insurance issue [Unknown]
  - Intracranial aneurysm [Not Recovered/Not Resolved]

NARRATIVE: CASE EVENT DATE: 2018
